FAERS Safety Report 6558924-5 (Version None)
Quarter: 2010Q1

REPORT INFORMATION
  Report Type: 
  Country: None (occurrence: None)
  Receive Date: 20100129
  Receipt Date: 20100121
  Transmission Date: 20100710
  Serious: Yes (Other)
  Sender: FDA-Public Use
  Company Number: ES-PFIZER INC-2010005121

PATIENT
  Age: 78 Year
  Sex: Male

DRUGS (3)
  1. CARDYL [Suspect]
     Indication: HYPERCHOLESTEROLAEMIA
     Dosage: 20 MG, 1X/DAY
     Route: 048
     Dates: end: 20090501
  2. CARDYL [Suspect]
     Dosage: 40 MG, 1X/DAY
     Route: 048
     Dates: start: 20090501, end: 20091016
  3. METFORMIN HCL [Suspect]
     Indication: TYPE 2 DIABETES MELLITUS
     Dosage: 1700 MG, 1X/DAY
     Route: 048
     Dates: start: 20090501, end: 20091016

REACTIONS (2)
  - ERYTHEMA [None]
  - ICHTHYOSIS [None]
